FAERS Safety Report 6693192-5 (Version None)
Quarter: 2010Q2

REPORT INFORMATION
  Report Type: 
  Country: None (occurrence: None)
  Receive Date: 20100422
  Receipt Date: 20100420
  Transmission Date: 20101027
  Serious: Yes (Hospitalization)
  Sender: FDA-Public Use
  Company Number: US-ELI_LILLY_AND_COMPANY-US201004003345

PATIENT
  Sex: Female

DRUGS (2)
  1. BYETTA [Suspect]
     Indication: DIABETES MELLITUS
     Dosage: 10 UG, UNK
     Route: 058
  2. BYETTA [Suspect]
     Dosage: 5 UG, UNK
     Route: 058

REACTIONS (3)
  - DRUG INTOLERANCE [None]
  - PANCREATITIS [None]
  - SKIN DISCOLOURATION [None]
